FAERS Safety Report 16662393 (Version 2)
Quarter: 2020Q1

REPORT INFORMATION
  Report Type: Report from Study
  Country: AU (occurrence: AU)
  Receive Date: 20190802
  Receipt Date: 20200129
  Transmission Date: 20200409
  Serious: No
  Sender: FDA-Public Use
  Company Number: AU-EXELIXIS-CABO-19019272

PATIENT
  Age: 69 Year
  Sex: Male

DRUGS (3)
  1. SOMATULINE [Concomitant]
     Active Substance: LANREOTIDE ACETATE
  2. CABOMETYX [Suspect]
     Active Substance: CABOZANTINIB S-MALATE
     Indication: HEPATOCELLULAR CARCINOMA
     Dosage: 60 MG, QD
     Dates: start: 2019, end: 2019
  3. CABOMETYX [Suspect]
     Active Substance: CABOZANTINIB S-MALATE
     Dosage: 60 MG, QOD
     Dates: start: 20190401, end: 2019

REACTIONS (7)
  - Dysgeusia [Unknown]
  - Off label use [Unknown]
  - Fatigue [Unknown]
  - Asthenia [Unknown]
  - Palmar-plantar erythrodysaesthesia syndrome [Unknown]
  - Swollen tongue [Unknown]
  - Constipation [Unknown]

NARRATIVE: CASE EVENT DATE: 201903
